FAERS Safety Report 8880945 (Version 1)
Quarter: 2012Q4

REPORT INFORMATION
  Report Type: 
  Country: US (occurrence: US)
  Receive Date: 20121101
  Receipt Date: 20121101
  Transmission Date: 20130627
  Serious: Yes (Other)
  Sender: FDA-Public Use
  Company Number: US-BRISTOL-MYERS SQUIBB COMPANY-17058926

PATIENT
  Age: 83 Year
  Sex: Female
  Weight: 55 kg

DRUGS (3)
  1. SINEMET [Suspect]
     Indication: PROGRESSIVE SUPRANUCLEAR PALSY
     Dosage: 5.5 pills per day, dose increased to 6.5 pills
     Dates: start: 2011
  2. SINEMET [Suspect]
     Indication: DYSARTHRIA
     Dosage: 5.5 pills per day, dose increased to 6.5 pills
     Dates: start: 2011
  3. RYTHMOL [Suspect]
     Indication: ATRIAL FIBRILLATION
     Dosage: Sustained Release

REACTIONS (6)
  - Coma [Unknown]
  - Musculoskeletal stiffness [Unknown]
  - Balance disorder [Unknown]
  - Dysphagia [Unknown]
  - Speech disorder [Unknown]
  - Fall [Unknown]
